FAERS Safety Report 23019949 (Version 1)
Quarter: 2023Q4

REPORT INFORMATION
  Report Type: Report from Study
  Country: US (occurrence: US)
  Receive Date: 20231003
  Receipt Date: 20231003
  Transmission Date: 20240110
  Serious: No
  Sender: FDA-Public Use
  Company Number: US-002147023-NVSC2022US134768

PATIENT
  Sex: Female
  Weight: 83.447 kg

DRUGS (6)
  1. TREPROSTINIL [Suspect]
     Active Substance: TREPROSTINIL
     Indication: Pulmonary arterial hypertension
     Dosage: 39.4 NG/KG/MIN, CONT
     Route: 058
     Dates: start: 20210107
  2. TREPROSTINIL [Suspect]
     Active Substance: TREPROSTINIL
     Dosage: 65.4 NG/KG/MIN, CONT (CONC: 10 MG/ML)
     Route: 058
  3. TREPROSTINIL [Suspect]
     Active Substance: TREPROSTINIL
     Dosage: 72.4 NG/KG/MIN, CONT (CONC: 10 MG/ML)
     Route: 058
     Dates: start: 20210701
  4. TREPROSTINIL [Suspect]
     Active Substance: TREPROSTINIL
     Dosage: 80 NG/KG/MIN; CONTINUOUS
     Route: 058
     Dates: start: 20210701
  5. AMBRISENTAN [Concomitant]
     Active Substance: AMBRISENTAN
     Indication: Product used for unknown indication
     Dosage: UNK
     Route: 065
  6. SILDENAFIL CITRATE [Concomitant]
     Active Substance: SILDENAFIL CITRATE
     Indication: Product used for unknown indication
     Dosage: UNK
     Route: 065

REACTIONS (4)
  - Blister [Unknown]
  - Dermatitis contact [Unknown]
  - COVID-19 [Unknown]
  - Injection site pain [Unknown]
